FAERS Safety Report 8959587 (Version 2)
Quarter: 2013Q1

REPORT INFORMATION
  Report Type: Spontaneous
  Country: US (occurrence: US)
  Receive Date: 20121212
  Receipt Date: 20130122
  Transmission Date: 20140127
  Serious: No
  Sender: FDA-Public Use
  Company Number: US-B.I. PHARMACEUTICALS,INC./RIDGEFIELD-2012-BI-02481BP

PATIENT
  Sex: Male

DRUGS (7)
  1. MICARDIS [Suspect]
     Indication: HYPERTENSION
     Route: 048
  2. VIAGRA [Suspect]
     Indication: ERECTILE DYSFUNCTION
     Route: 048
  3. CRESTOR [Concomitant]
     Indication: BLOOD CHOLESTEROL INCREASED
  4. METOPROLOL [Concomitant]
     Indication: HYPERTENSION
  5. ZANTAC [Concomitant]
     Indication: GASTROOESOPHAGEAL REFLUX DISEASE
  6. PLAVIX [Concomitant]
     Indication: CARDIAC DISORDER
  7. CIALIS [Concomitant]
     Indication: ERECTILE DYSFUNCTION

REACTIONS (3)
  - Erectile dysfunction [Unknown]
  - Drug interaction [Unknown]
  - Cardiac operation [Unknown]
